FAERS Safety Report 21722166 (Version 1)
Quarter: 2022Q4

REPORT INFORMATION
  Report Type: Spontaneous
  Country: CN (occurrence: CN)
  Receive Date: 20221213
  Receipt Date: 20221213
  Transmission Date: 20230113
  Serious: Yes (Hospitalization, Other)
  Sender: FDA-Public Use
  Company Number: CN-PFIZER INC-PV202200116658

PATIENT
  Age: 82 Year
  Sex: Male

DRUGS (8)
  1. VORICONAZOLE [Interacting]
     Active Substance: VORICONAZOLE
     Indication: Antifungal treatment
     Dosage: 0.4 G, 2X/DAY (Q12H, ON THE FIRST DAY)
     Route: 041
     Dates: start: 201208, end: 201208
  2. VORICONAZOLE [Interacting]
     Active Substance: VORICONAZOLE
     Dosage: 0.2 G, 2X/DAY (Q12H)
     Route: 041
     Dates: start: 201208, end: 201208
  3. VORICONAZOLE [Interacting]
     Active Substance: VORICONAZOLE
     Indication: Antifungal treatment
     Dosage: 0.2 G, 2X/DAY (Q12H)
     Route: 048
     Dates: start: 20120816
  4. PASINIAZID [Interacting]
     Active Substance: PASINIAZID
     Indication: Pulmonary tuberculosis
     Dosage: 0.3 G, 3X/DAY
     Route: 048
     Dates: start: 20120824
  5. ETHAMBUTOL [Interacting]
     Active Substance: ETHAMBUTOL HYDROCHLORIDE
     Indication: Pulmonary tuberculosis
     Dosage: 0.75 G, 1X/DAY
     Route: 048
     Dates: start: 20120824
  6. PANTOPRAZOLE [Interacting]
     Active Substance: PANTOPRAZOLE
     Indication: Abdominal discomfort
     Dosage: 40 MG, 1X/DAY
     Route: 041
     Dates: start: 20120826
  7. PANTOPRAZOLE [Interacting]
     Active Substance: PANTOPRAZOLE
     Indication: Gastrooesophageal reflux disease
  8. VANCOMYCIN HYDROCHLORIDE [Concomitant]
     Active Substance: VANCOMYCIN HYDROCHLORIDE
     Indication: Anti-infective therapy
     Dosage: 1 G, 2X/DAY (Q12H)
     Route: 041
     Dates: end: 20120810

REACTIONS (10)
  - Drug interaction [Recovering/Resolving]
  - Renal injury [Recovering/Resolving]
  - Liver injury [Recovering/Resolving]
  - Neurological symptom [Recovering/Resolving]
  - Hallucination [Recovering/Resolving]
  - Muscular weakness [Recovering/Resolving]
  - Myalgia [Recovering/Resolving]
  - Dysphagia [Recovering/Resolving]
  - Somnolence [Recovering/Resolving]
  - Nuchal rigidity [Recovering/Resolving]

NARRATIVE: CASE EVENT DATE: 20120827
